FAERS Safety Report 5024458-2 (Version None)
Quarter: 2006Q2

REPORT INFORMATION
  Report Type: 
  Country: None (occurrence: None)
  Receive Date: 20060607
  Receipt Date: 20060524
  Transmission Date: 20061013
  Serious: Yes (Hospitalization)
  Sender: FDA-Public Use
  Company Number: 2006069211

PATIENT
  Age: 45 Year
  Sex: Male
  Weight: 47.2 kg

DRUGS (3)
  1. METHYLPREDISOLONE  TABLET  (METHYLPREDISOLONE) [Suspect]
     Indication: PROPHYLAXIS AGAINST TRANSPLANT REJECTION
     Dosage: 8 MG OR 2 MG (1 IN 1 D)
     Dates: start: 19890101, end: 20010101
  2. MIZORIBINE [Concomitant]
  3. CYCLOSPORINE [Concomitant]

REACTIONS (3)
  - DIVERTICULAR PERFORATION [None]
  - LARGE INTESTINE PERFORATION [None]
  - POSTOPERATIVE WOUND COMPLICATION [None]
